FAERS Safety Report 7376922-9 (Version None)
Quarter: 2011Q1

REPORT INFORMATION
  Report Type: 
  Country: None (occurrence: None)
  Receive Date: 20110328
  Receipt Date: 20110318
  Transmission Date: 20110831
  Serious: No
  Sender: FDA-Public Use
  Company Number: US-BAYER-2011-024592

PATIENT

DRUGS (2)
  1. DRONEDARONE [Concomitant]
  2. BETAPACE [Suspect]

REACTIONS (1)
  - DRUG INEFFECTIVE [None]
